FAERS Safety Report 7392986-0 (Version None)
Quarter: 2011Q2

REPORT INFORMATION
  Report Type: 
  Country: None (occurrence: None)
  Receive Date: 20110404
  Receipt Date: 20110309
  Transmission Date: 20111010
  Serious: No
  Sender: FDA-Public Use
  Company Number: US-B.I. PHARMACEUTICALS,INC./RIDGEFIELD-2011-BP-07497BP

PATIENT
  Sex: Male

DRUGS (7)
  1. DIGOXIN [Concomitant]
     Indication: ATRIAL FIBRILLATION
     Dosage: 0.125 MG
  2. VESICARE [Concomitant]
     Indication: URINARY TRACT DISORDER
     Dosage: 5 MG
  3. AMLODIPINE BESYLATE [Concomitant]
     Indication: RENAL DISORDER
  4. ALLOPURINOL [Concomitant]
     Indication: GOUT
     Dosage: 150 MG
  5. LOPERAMIDE [Concomitant]
     Indication: SURGERY
     Dosage: 2 MG
  6. PRADAXA [Suspect]
     Indication: ATRIAL FIBRILLATION
     Route: 048
     Dates: start: 20110101, end: 20110201
  7. LYRICA [Concomitant]
     Indication: FIBROMYALGIA
     Dosage: 50 MG

REACTIONS (2)
  - PRURITUS [None]
  - WOUND [None]
